FAERS Safety Report 25339036 (Version 2)
Quarter: 2025Q3

REPORT INFORMATION
  Report Type: Spontaneous
  Country: US (occurrence: US)
  Receive Date: 20250521
  Receipt Date: 20250826
  Transmission Date: 20251020
  Serious: No
  Sender: AMNEAL
  Company Number: US-AMNEAL PHARMACEUTICALS-2025-AMRX-00717

PATIENT

DRUGS (5)
  1. CREXONT [Suspect]
     Active Substance: CARBIDOPA\LEVODOPA
     Indication: Parkinson^s disease
     Route: 065
     Dates: start: 202501
  2. CREXONT [Suspect]
     Active Substance: CARBIDOPA\LEVODOPA
     Route: 048
  3. CREXONT [Suspect]
     Active Substance: CARBIDOPA\LEVODOPA
     Route: 048
  4. CREXONT [Suspect]
     Active Substance: CARBIDOPA\LEVODOPA
     Dosage: 52.5/210 MG, 3 CAPSULES, 3 /DAY AT 08:00, 14:00, 20:00
     Route: 048
  5. GOCOVRI [Concomitant]
     Active Substance: AMANTADINE
     Indication: Product used for unknown indication
     Route: 065

REACTIONS (3)
  - Poor quality sleep [Not Recovered/Not Resolved]
  - Drug intolerance [Unknown]
  - Night sweats [Not Recovered/Not Resolved]

NARRATIVE: CASE EVENT DATE: 20250518
